FAERS Safety Report 8007823-0 (Version None)
Quarter: 2011Q4

REPORT INFORMATION
  Report Type: 
  Country: None (occurrence: None)
  Receive Date: 20111227
  Receipt Date: 20101213
  Transmission Date: 20120403
  Serious: No
  Sender: FDA-Public Use
  Company Number: US-ABBOTT-10P-163-0691733-00

PATIENT
  Sex: Male
  Weight: 72.64 kg

DRUGS (2)
  1. LUPRON DEPOT [Suspect]
     Indication: PROSTATE CANCER
     Dates: start: 20100901
  2. BICALUTAMIDE [Suspect]
     Indication: PROSTATE CANCER

REACTIONS (3)
  - PALPITATIONS [None]
  - BACK PAIN [None]
  - CHEST PAIN [None]
